FAERS Safety Report 19608916 (Version 4)
Quarter: 2021Q3

REPORT INFORMATION
  Report Type: Report from Study
  Country: CO (occurrence: CO)
  Receive Date: 20210726
  Receipt Date: 20210928
  Transmission Date: 20211014
  Serious: Yes (Hospitalization)
  Sender: FDA-Public Use
  Company Number: NVSC2021CO163782

PATIENT
  Sex: Female

DRUGS (2)
  1. REVOLADE [Suspect]
     Active Substance: ELTROMBOPAG OLAMINE
     Indication: IMMUNE THROMBOCYTOPENIA
     Dosage: 75 MG, QD (AT NIGHT)
     Route: 048
  2. REVOLADE [Suspect]
     Active Substance: ELTROMBOPAG OLAMINE
     Dosage: 50 MG, QD (2 TABLETS OF 25 MG AT MIDDAY)
     Route: 048
     Dates: start: 20210817

REACTIONS (12)
  - Pain [Unknown]
  - Petechiae [Unknown]
  - Depressed mood [Unknown]
  - Asthenia [Unknown]
  - Platelet count decreased [Unknown]
  - Vaginal haemorrhage [Unknown]
  - Erythema [Unknown]
  - Haematoma [Unknown]
  - Headache [Unknown]
  - Fatigue [Unknown]
  - Product availability issue [Unknown]
  - Contusion [Unknown]
